FAERS Safety Report 19139354 (Version 1)
Quarter: 2021Q2

REPORT INFORMATION
  Report Type: Spontaneous
  Country: US (occurrence: US)
  Receive Date: 20210415
  Receipt Date: 20210415
  Transmission Date: 20210717
  Serious: Yes (Hospitalization)
  Sender: FDA-Public Use
  Company Number: None

PATIENT
  Sex: Female
  Weight: 66.7 kg

DRUGS (3)
  1. DEXAMETHASONE. [Suspect]
     Active Substance: DEXAMETHASONE
     Dates: end: 20210331
  2. LENALIDOMIDE [Suspect]
     Active Substance: LENALIDOMIDE
     Dates: end: 20210406
  3. DARATUMUMAB [Suspect]
     Active Substance: DARATUMUMAB
     Dates: end: 20210331

REACTIONS (5)
  - Dyspnoea [None]
  - Deep vein thrombosis [None]
  - Fatigue [None]
  - Pulmonary embolism [None]
  - Fibrin D dimer increased [None]

NARRATIVE: CASE EVENT DATE: 20210406
